FAERS Safety Report 8235637-5 (Version None)
Quarter: 2012Q1

REPORT INFORMATION
  Report Type: 
  Country: None (occurrence: None)
  Receive Date: 20120323
  Receipt Date: 20120312
  Transmission Date: 20120608
  Serious: Yes (Hospitalization)
  Sender: FDA-Public Use
  Company Number: DSM-2012-00323

PATIENT
  Age: 82 Year
  Sex: Male

DRUGS (12)
  1. ACETAMINOPHEN [Suspect]
     Route: 048
     Dates: end: 20120128
  2. AMLODIPINE BESYLATE [Concomitant]
  3. ESIDREX (HYDROCHLOROTHIAZIDE) (HYDROCHLOROTHIAZIDE) [Concomitant]
  4. AMOXICILLIN AND CLAVULANATE POTASSIUM [Suspect]
     Indication: LUNG INFECTION
     Dates: start: 20120123, end: 20120128
  5. ATORVASTATIN CALCIUM [Suspect]
     Indication: HYPERCHOLESTEROLAEMIA
     Route: 048
     Dates: end: 20120128
  6. KARDEGIC (ACETYLSALICYLATE LYSINE) (ACETYLSALICYLATE LYSINE) [Concomitant]
  7. PLAVIX [Concomitant]
  8. UMULINE (INSULIN HUMAN) (INSULIN HUMAN) [Concomitant]
  9. CLAFORAN (CEFOTAXIME SODIUM) (CEFOTAXIME SODIUM) [Concomitant]
  10. OLMESARTAN MEDOXOMIL [Suspect]
     Indication: HYPERTENSION
     Route: 048
     Dates: start: 20120101, end: 20120128
  11. VENTOLIN [Concomitant]
  12. GLUCOPHAGE [Suspect]
     Indication: TYPE 2 DIABETES MELLITUS
     Dates: end: 20120128

REACTIONS (4)
  - INFECTIVE EXACERBATION OF CHRONIC OBSTRUCTIVE AIRWAYS DISEASE [None]
  - HEPATIC CYST [None]
  - LIVER INJURY [None]
  - JAUNDICE [None]
